FAERS Safety Report 9199842 (Version 1)
Quarter: 2013Q1

REPORT INFORMATION
  Report Type: Spontaneous
  Country: US (occurrence: US)
  Receive Date: 20130329
  Receipt Date: 20130329
  Transmission Date: 20140127
  Serious: No
  Sender: FDA-Public Use
  Company Number: US-GALDERMA-US13000690

PATIENT
  Age: 17 Year
  Sex: Female

DRUGS (3)
  1. DIFFERIN [Suspect]
     Indication: ACNE
     Route: 061
  2. DIFFERIN [Suspect]
     Indication: ACNE
     Route: 061
     Dates: start: 201211
  3. CETAPHIL DAILY FACIAL MOISTURIZER SPF15 [Concomitant]
     Indication: DRY SKIN PROPHYLAXIS
     Route: 061

REACTIONS (2)
  - Dry skin [Recovered/Resolved]
  - Drug ineffective [Recovered/Resolved]
